FAERS Safety Report 20516864 (Version 1)
Quarter: 2022Q1

REPORT INFORMATION
  Report Type: Spontaneous
  Country: AU (occurrence: AU)
  Receive Date: 20220225
  Receipt Date: 20220225
  Transmission Date: 20220424
  Serious: Yes (Other)
  Sender: FDA-Public Use
  Company Number: AU-SNT-000226

PATIENT
  Age: 66 Year
  Sex: Female

DRUGS (8)
  1. POSACONAZOLE [Suspect]
     Active Substance: POSACONAZOLE
     Indication: Aspergillus infection
     Route: 048
     Dates: start: 201509, end: 20170509
  2. TERBINAFINE [Suspect]
     Active Substance: TERBINAFINE
     Indication: Fungal infection
     Route: 065
     Dates: start: 201406, end: 201702
  3. POSACONAZOLE [Suspect]
     Active Substance: POSACONAZOLE
     Indication: Aspergillus infection
     Route: 048
     Dates: start: 20170509, end: 20170511
  4. POSACONAZOLE [Suspect]
     Active Substance: POSACONAZOLE
     Indication: Aspergillus infection
     Route: 048
     Dates: start: 20170512, end: 20170516
  5. POSACONAZOLE [Suspect]
     Active Substance: POSACONAZOLE
     Indication: Aspergillus infection
     Route: 048
     Dates: start: 201809, end: 20181023
  6. POSACONAZOLE [Suspect]
     Active Substance: POSACONAZOLE
     Indication: Aspergillus infection
     Route: 048
     Dates: start: 20181024, end: 20181126
  7. POSACONAZOLE [Suspect]
     Active Substance: POSACONAZOLE
     Indication: Aspergillus infection
     Route: 048
     Dates: end: 20181130
  8. TERBINAFINE [Suspect]
     Active Substance: TERBINAFINE
     Indication: Fungal infection
     Route: 065
     Dates: start: 201809, end: 20181127

REACTIONS (9)
  - Dementia [Unknown]
  - Delirium [Recovered/Resolved]
  - Aphasia [Unknown]
  - Speech disorder [Unknown]
  - Headache [Unknown]
  - Balance disorder [Unknown]
  - Cognitive disorder [Unknown]
  - Dyspnoea [Unknown]
  - Cough [Unknown]
